FAERS Safety Report 5010980-1 (Version None)
Quarter: 2006Q2

REPORT INFORMATION
  Report Type: 
  Country: None (occurrence: None)
  Receive Date: 20060523
  Receipt Date: 20060510
  Transmission Date: 20061013
  Serious: Yes (Hospitalization)
  Sender: FDA-Public Use
  Company Number: HQWYE257510MAY06

PATIENT
  Age: 56 Year
  Sex: Male

DRUGS (5)
  1. PANTOPRAZOLE SODIUM [Suspect]
     Dosage: 20 MG 1X PER 1 DAY
     Route: 048
     Dates: start: 20060117, end: 20060215
  2. HYDROCORTANCYL (PREDNISOLONE, ) [Suspect]
     Dosage: 5 MG
     Route: 048
     Dates: start: 20060117, end: 20060215
  3. SULFASALAZINE [Suspect]
     Dosage: SEE IMAGE
     Route: 048
     Dates: start: 20060117, end: 20060123
  4. SULFASALAZINE [Suspect]
     Dosage: SEE IMAGE
     Route: 048
     Dates: start: 20060124, end: 20060215
  5. VOLTAREN [Suspect]
     Dosage: 1 DOSAGE FORM 1X PER 1 DAY
     Route: 048
     Dates: start: 20060117, end: 20060215

REACTIONS (13)
  - BLOOD ALBUMIN DECREASED [None]
  - DERMATITIS EXFOLIATIVE [None]
  - DRUG RASH WITH EOSINOPHILIA AND SYSTEMIC SYMPTOMS [None]
  - EPSTEIN-BARR VIRUS INFECTION [None]
  - FACE OEDEMA [None]
  - HEPATITIS [None]
  - IMMUNOGLOBULINS DECREASED [None]
  - INFLAMMATION [None]
  - MONONUCLEOSIS SYNDROME [None]
  - PROTEIN TOTAL DECREASED [None]
  - TOXIC SKIN ERUPTION [None]
  - TOXOPLASMOSIS [None]
  - VIRUS SEROLOGY TEST POSITIVE [None]
